FAERS Safety Report 12626532 (Version 4)
Quarter: 2019Q3

REPORT INFORMATION
  Report Type: Spontaneous
  Country: US (occurrence: US)
  Receive Date: 20160805
  Receipt Date: 20190830
  Transmission Date: 20191004
  Serious: Yes (Other)
  Sender: FDA-Public Use
  Company Number: US-PFIZER INC-2016254233

PATIENT
  Age: 60 Year
  Sex: Female
  Weight: 93 kg

DRUGS (2)
  1. IBRANCE [Suspect]
     Active Substance: PALBOCICLIB
     Indication: BREAST CANCER STAGE IV
     Dosage: 125 MG, CYCLIC (ONCE A DAY BY MOUTH ON FOR 21 DAYS AND OFF FOR 7 DAYS)
     Dates: start: 201508, end: 20180322
  2. FEMARA [Concomitant]
     Active Substance: LETROZOLE
     Indication: BREAST CANCER STAGE IV
     Dosage: UNK
     Dates: start: 201508

REACTIONS (5)
  - Compression fracture [Unknown]
  - Nasopharyngitis [Unknown]
  - Malaise [Unknown]
  - Diarrhoea [Unknown]
  - Neoplasm progression [Unknown]
